FAERS Safety Report 4558346-2 (Version None)
Quarter: 2005Q1

REPORT INFORMATION
  Report Type: 
  Country: None (occurrence: None)
  Receive Date: 20050103
  Receipt Date: 20041006
  Transmission Date: 20050727
  Serious: Yes (Other)
  Sender: FDA-Public Use
  Company Number: 2004UW21074

PATIENT
  Age: 73 Year
  Sex: Male
  Weight: 83.914 kg

DRUGS (2)
  1. CRESTOR [Suspect]
     Indication: HYPERCHOLESTEROLAEMIA
     Dosage: 10 MG QD PO
     Route: 048
     Dates: start: 20041005
  2. TEVETEN [Concomitant]

REACTIONS (4)
  - DIARRHOEA [None]
  - FATIGUE [None]
  - NAUSEA [None]
  - VOMITING [None]
